FAERS Safety Report 5335020-6 (Version None)
Quarter: 2007Q2

REPORT INFORMATION
  Report Type: 
  Country: None (occurrence: None)
  Receive Date: 20070525
  Receipt Date: 20070517
  Transmission Date: 20071010
  Serious: Yes (Hospitalization, Disabling)
  Sender: FDA-Public Use
  Company Number: CA-SANOFI-SYNTHELABO-F01200301346

PATIENT
  Sex: Male

DRUGS (3)
  1. CAPECITABINE [Suspect]
     Dosage: 800 MG TWICE A DAY FROM DAY 1 TO DAY 15, Q3W
     Route: 048
     Dates: start: 20030902, end: 20030902
  2. OXALIPLATIN [Suspect]
     Indication: COLORECTAL CANCER METASTATIC
     Route: 042
     Dates: start: 20030902, end: 20030902
  3. DURAGESIC-100 [Concomitant]
     Dosage: UNK
     Route: 065
     Dates: start: 20030215

REACTIONS (1)
  - LOSS OF CONSCIOUSNESS [None]
